FAERS Safety Report 15247088 (Version 1)
Quarter: 2018Q3

REPORT INFORMATION
  Report Type: Spontaneous
  Country: US (occurrence: US)
  Receive Date: 20180807
  Receipt Date: 20180807
  Transmission Date: 20181010
  Serious: No
  Sender: FDA-Public Use
  Company Number: US-ABBVIE-17P-163-2156426-00

PATIENT
  Age: 54 Year
  Sex: Female

DRUGS (9)
  1. DEPAKOTE [Suspect]
     Active Substance: DIVALPROEX SODIUM
     Indication: SEIZURE
     Route: 048
     Dates: start: 20171015, end: 20171027
  2. TRAZODONE [Concomitant]
     Active Substance: TRAZODONE HYDROCHLORIDE
     Indication: INSOMNIA
  3. MACROBID [Concomitant]
     Active Substance: NITROFURANTOIN\NITROFURANTOIN MONOHYDRATE
     Indication: URINARY TRACT INFECTION
  4. NORCO [Concomitant]
     Active Substance: ACETAMINOPHEN\HYDROCODONE BITARTRATE
     Indication: POST-TRAUMATIC PAIN
     Dates: start: 201707
  5. ATIVAN [Concomitant]
     Active Substance: LORAZEPAM
     Indication: INSOMNIA
  6. VIVELLE?DOT [Concomitant]
     Active Substance: ESTRADIOL
     Indication: SUPPLEMENTATION THERAPY
  7. VALIUM [Concomitant]
     Active Substance: DIAZEPAM
     Indication: MUSCLE INJURY
  8. AMBIEN [Concomitant]
     Active Substance: ZOLPIDEM TARTRATE
     Indication: INSOMNIA
  9. OXYCODONE [Concomitant]
     Active Substance: OXYCODONE
     Indication: POST-TRAUMATIC PAIN
     Dates: start: 201707

REACTIONS (5)
  - Gait disturbance [Recovering/Resolving]
  - Musculoskeletal disorder [Recovering/Resolving]
  - Blood pressure increased [Recovered/Resolved]
  - Oedema [Recovering/Resolving]
  - Joint swelling [Recovering/Resolving]

NARRATIVE: CASE EVENT DATE: 20171018
